FAERS Safety Report 7998456-0 (Version None)
Quarter: 2011Q4

REPORT INFORMATION
  Report Type: 
  Country: None (occurrence: None)
  Receive Date: 20111221
  Receipt Date: 20111212
  Transmission Date: 20120403
  Serious: Yes (Hospitalization)
  Sender: FDA-Public Use
  Company Number: FR-JNJFOC-20111205634

PATIENT
  Age: 28 Year
  Sex: Female

DRUGS (2)
  1. CORTICOSTEROIDS [Concomitant]
     Indication: SCLERITIS
  2. REMICADE [Suspect]
     Indication: SCLERITIS
     Route: 042
     Dates: start: 20100707

REACTIONS (1)
  - SYSTEMIC LUPUS ERYTHEMATOSUS [None]
